FAERS Safety Report 14266461 (Version 2)
Quarter: 2018Q1

REPORT INFORMATION
  Report Type: Spontaneous
  Country: US (occurrence: US)
  Receive Date: 20171210
  Receipt Date: 20180108
  Transmission Date: 20180508
  Serious: No
  Sender: FDA-Public Use
  Company Number: US-B.I. PHARMACEUTICALS,INC./RIDGEFIELD-2017-BI-064763

PATIENT
  Sex: Male

DRUGS (1)
  1. COMBIVENT [Suspect]
     Active Substance: ALBUTEROL SULFATE\IPRATROPIUM BROMIDE
     Indication: CHRONIC OBSTRUCTIVE PULMONARY DISEASE
     Dosage: TWO PUFFS;  FORM STRENGTH: 20 MCG / 100 MCG; ACTION(S) TAKEN WITH PRODUCT: DOSE NOT CHANGED
     Route: 055

REACTIONS (7)
  - Emphysema [Not Recovered/Not Resolved]
  - Arthralgia [Unknown]
  - Disability [Unknown]
  - Overdose [Unknown]
  - Device malfunction [Unknown]
  - Palpitations [Unknown]
  - Wheezing [Unknown]

NARRATIVE: CASE EVENT DATE: 2017
